FAERS Safety Report 9302176 (Version 4)
Quarter: 2014Q1

REPORT INFORMATION
  Report Type: Spontaneous
  Country: NL (occurrence: NL)
  Receive Date: 20130522
  Receipt Date: 20140218
  Transmission Date: 20141002
  Serious: Yes (Hospitalization)
  Sender: FDA-Public Use
  Company Number: NL-MERCK-1305NLD002886

PATIENT
  Age: 69 Year
  Sex: Female

DRUGS (6)
  1. EZETROL [Suspect]
     Indication: HYPERCHOLESTEROLAEMIA
     Dosage: 10 MG, QD
     Route: 048
  2. EZETROL [Suspect]
     Indication: HYPERCHOLESTEROLAEMIA
     Dosage: 10 MG, ONCE DAILY NEW PACKAGE
     Route: 048
     Dates: start: 20130430, end: 20130520
  3. EZETROL [Suspect]
     Dosage: 10 MG ONCE DAILY, ORIGINAL PACKAGE
     Route: 048
     Dates: start: 1996
  4. APROVEL [Concomitant]
     Indication: HYPERTENSION
     Dosage: 30 MG, ONCE DAILY
  5. ASPIRIN [Concomitant]
     Indication: ANTICOAGULANT THERAPY
     Dosage: 80 MG, ONCE DAILY
  6. PLAVIX [Concomitant]

REACTIONS (17)
  - Cardiac disorder [Recovered/Resolved]
  - Abdominal distension [Recovered/Resolved]
  - Peritoneal disorder [Recovered/Resolved]
  - Infrequent bowel movements [Recovered/Resolved]
  - Tension headache [Recovered/Resolved]
  - Abdominal distension [Recovered/Resolved]
  - Peritoneal disorder [Recovered/Resolved]
  - Infrequent bowel movements [Recovered/Resolved]
  - Tension headache [Recovered/Resolved]
  - Abdominal distension [Recovered/Resolved]
  - Peritoneal disorder [Recovered/Resolved]
  - Infrequent bowel movements [Recovered/Resolved]
  - Tension headache [Recovered/Resolved]
  - Chest pain [Unknown]
  - Cholelithiasis [Recovered/Resolved]
  - Long QT syndrome [Unknown]
  - Adverse event [Unknown]
